FAERS Safety Report 6321995-5 (Version None)
Quarter: 2009Q3

REPORT INFORMATION
  Report Type: 
  Country: None (occurrence: None)
  Receive Date: 20090824
  Receipt Date: 20090824
  Transmission Date: 20100115
  Serious: Yes (Other)
  Sender: FDA-Public Use
  Company Number: US-PFIZER INC-2009175710

PATIENT
  Sex: Female
  Weight: 61.224 kg

DRUGS (4)
  1. LYRICA [Suspect]
     Indication: FIBROMYALGIA
     Dosage: 75 MG, 2X/DAY
     Route: 048
     Dates: start: 20090101, end: 20090601
  2. ELAVIL [Concomitant]
     Dosage: UNK
  3. SOMA [Concomitant]
     Dosage: UNK
  4. METHADONE [Concomitant]
     Dosage: UNK

REACTIONS (2)
  - NARCOLEPSY [None]
  - VISION BLURRED [None]
